FAERS Safety Report 9759407 (Version 1)
Quarter: 2013Q4

REPORT INFORMATION
  Report Type: Spontaneous
  Country: US (occurrence: None)
  Receive Date: 20131216
  Receipt Date: 20131216
  Transmission Date: 20140711
  Serious: Yes (Hospitalization, Other)
  Sender: FDA-Public Use
  Company Number: 163-21880-12110124(0)

PATIENT
  Age: 82 Year
  Sex: Male

DRUGS (1)
  1. REVLIMID [Suspect]
     Indication: MYELODYSPLASTIC SYNDROME
     Dosage: 5 MG, 28 IN 28 D, PO? ? ? ? ? ? ? ? ? ?

REACTIONS (10)
  - Pneumonia [None]
  - Renal impairment [None]
  - Oedema [None]
  - Hypokalaemia [None]
  - Asthenia [None]
  - Pyrexia [None]
  - Malaise [None]
  - Fall [None]
  - Hypotension [None]
  - Diverticulitis [None]
